FAERS Safety Report 19091762 (Version 1)
Quarter: 2021Q2

REPORT INFORMATION
  Report Type: Spontaneous
  Country: US (occurrence: US)
  Receive Date: 20210402
  Receipt Date: 20210402
  Transmission Date: 20210717
  Serious: Yes (Death)
  Sender: FDA-Public Use
  Company Number: None

PATIENT
  Age: 79 Year
  Sex: Male
  Weight: 54.16 kg

DRUGS (11)
  1. INLYTA [Suspect]
     Active Substance: AXITINIB
     Indication: METASTASES TO LUNG
     Route: 048
     Dates: start: 20201229
  2. MULTIVITAMIN [Concomitant]
     Active Substance: VITAMINS
  3. SERTRALINE [Concomitant]
     Active Substance: SERTRALINE HYDROCHLORIDE
  4. FINASTERIDE 5MG [Concomitant]
     Active Substance: FINASTERIDE
  5. FISH OIL CONCENTRATE 1000MG [Concomitant]
  6. ZOFRAN [Concomitant]
     Active Substance: ONDANSETRON HYDROCHLORIDE
  7. AMLODIPINE?BENAZEPRIL 10?20MG [Concomitant]
  8. PANTOPRAZOLE 40MG [Concomitant]
     Active Substance: PANTOPRAZOLE SODIUM
  9. FORTEO [Concomitant]
     Active Substance: TERIPARATIDE
  10. PREDNISONE 20MG [Concomitant]
     Active Substance: PREDNISONE
  11. GUAIFENESIN?CODEINE 100?10MG/5ML [Concomitant]

REACTIONS (1)
  - Death [None]
